FAERS Safety Report 13601525 (Version 1)
Quarter: 2017Q2

REPORT INFORMATION
  Report Type: Spontaneous
  Country: US (occurrence: US)
  Receive Date: 20170601
  Receipt Date: 20170601
  Transmission Date: 20170830
  Serious: No
  Sender: FDA-Public Use
  Company Number: US-GLAXOSMITHKLINE-US2017080474

PATIENT
  Sex: Female

DRUGS (3)
  1. VOLTAREN [Suspect]
     Active Substance: DICLOFENAC SODIUM
     Indication: BACK PAIN
     Dosage: 5 TIMES
     Dates: start: 20170522, end: 20170525
  2. VOLTAREN [Suspect]
     Active Substance: DICLOFENAC SODIUM
     Indication: ARTHRALGIA
  3. VOLTAREN [Suspect]
     Active Substance: DICLOFENAC SODIUM
     Indication: MUSCULOSKELETAL PAIN
     Dosage: UNK
     Dates: start: 2012

REACTIONS (7)
  - Contraindicated drug prescribed [Unknown]
  - Product use in unapproved indication [Unknown]
  - Inappropriate schedule of drug administration [Unknown]
  - Off label use [Unknown]
  - Expired product administered [Unknown]
  - Contraindicated product administered [Unknown]
  - Drug administered at inappropriate site [Unknown]
